FAERS Safety Report 12044421 (Version 1)
Quarter: 2016Q1

REPORT INFORMATION
  Report Type: Report from Study
  Country: US (occurrence: US)
  Receive Date: 20160208
  Receipt Date: 20160208
  Transmission Date: 20160526
  Serious: No
  Sender: FDA-Public Use
  Company Number: US-ABBVIE-15P-163-1345368-00

PATIENT
  Sex: Female

DRUGS (1)
  1. HUMIRA [Suspect]
     Active Substance: ADALIMUMAB
     Indication: PSORIATIC ARTHROPATHY
     Route: 058
     Dates: start: 201410

REACTIONS (10)
  - Pelvic pain [Not Recovered/Not Resolved]
  - Inflammation [Recovering/Resolving]
  - Osteoarthritis [Not Recovered/Not Resolved]
  - Muscle spasms [Unknown]
  - Urinary incontinence [Unknown]
  - Urinary tract infection [Recovering/Resolving]
  - Headache [Unknown]
  - Drug ineffective [Unknown]
  - Back pain [Not Recovered/Not Resolved]
  - Nausea [Unknown]
